FAERS Safety Report 14633985 (Version 2)
Quarter: 2018Q1

REPORT INFORMATION
  Report Type: Spontaneous
  Country: DE (occurrence: DE)
  Receive Date: 20180314
  Receipt Date: 20180327
  Transmission Date: 20180509
  Serious: Yes (Other)
  Sender: FDA-Public Use
  Company Number: DE-009507513-1803DEU005628

PATIENT
  Age: 68 Year
  Sex: Male

DRUGS (3)
  1. BISPHOSPHONATE (UNSPECIFIED) [Concomitant]
     Dosage: EVERY 4 WEEKS
  2. VITAMIN D [Concomitant]
     Active Substance: CHOLECALCIFEROL
     Dosage: UNK
  3. KEYTRUDA [Suspect]
     Active Substance: PEMBROLIZUMAB
     Indication: MALIGNANT MELANOMA
     Dosage: UNK
     Dates: end: 20180206

REACTIONS (1)
  - Oedematous pancreatitis [Recovering/Resolving]
